FAERS Safety Report 25294062 (Version 1)
Quarter: 2025Q2

REPORT INFORMATION
  Report Type: Spontaneous
  Country: US (occurrence: US)
  Receive Date: 20250510
  Receipt Date: 20250510
  Transmission Date: 20250717
  Serious: No
  Sender: UCB
  Company Number: US-UCBSA-2024019396

PATIENT
  Sex: Female
  Weight: 122.9 kg

DRUGS (7)
  1. CERTOLIZUMAB PEGOL [Suspect]
     Active Substance: CERTOLIZUMAB PEGOL
     Indication: Psoriasis
     Dosage: 200 MILLIGRAM, EV 2 WEEKS(QOW)
  2. COSENTYX [Concomitant]
     Active Substance: SECUKINUMAB
     Indication: Psoriasis
  3. ENBREL [Concomitant]
     Active Substance: ETANERCEPT
     Indication: Psoriasis
  4. TALTZ [Concomitant]
     Active Substance: IXEKIZUMAB
     Indication: Psoriasis
  5. HUMIRA [Concomitant]
     Active Substance: ADALIMUMAB
     Indication: Psoriasis
  6. SKYRIZI [Concomitant]
     Active Substance: RISANKIZUMAB-RZAA
     Indication: Psoriasis
  7. SOTYKTU [Concomitant]
     Active Substance: DEUCRAVACITINIB
     Indication: Psoriasis

REACTIONS (3)
  - Treatment failure [Unknown]
  - Contraindicated product administered [Unknown]
  - Drug intolerance [Unknown]
